FAERS Safety Report 8287500-1 (Version None)
Quarter: 2012Q2

REPORT INFORMATION
  Report Type: 
  Country: None (occurrence: None)
  Receive Date: 20120411
  Receipt Date: 20120402
  Transmission Date: 20120825
  Serious: Yes (Other)
  Sender: FDA-Public Use
  Company Number: GR-GDP-12413383

PATIENT
  Sex: Female

DRUGS (1)
  1. ADAPALENE [Suspect]
     Indication: ACNE
     Dosage: (1 DF QD TOPICAL)
     Route: 061
     Dates: start: 20080101, end: 20120301

REACTIONS (3)
  - PREGNANCY TEST POSITIVE [None]
  - ABORTION INDUCED [None]
  - MATERNAL EXPOSURE DURING PREGNANCY [None]
